FAERS Safety Report 7372968-5 (Version None)
Quarter: 2011Q1

REPORT INFORMATION
  Report Type: 
  Country: None (occurrence: None)
  Receive Date: 20110324
  Receipt Date: 20110315
  Transmission Date: 20110831
  Serious: Yes (Hospitalization)
  Sender: FDA-Public Use
  Company Number: DE-ELI_LILLY_AND_COMPANY-DE201103004738

PATIENT
  Age: 42 Year
  Sex: Female

DRUGS (4)
  1. PANTOPRAZOLE [Concomitant]
     Indication: GASTRIC DISORDER
     Dates: start: 20110217
  2. RAMIPRIL [Concomitant]
  3. CYMBALTA [Suspect]
     Indication: DEPRESSION
     Dosage: 90 MG, UNK
  4. BISOPROLOL [Concomitant]
     Dosage: UNK, UNK

REACTIONS (3)
  - ACUTE HEPATIC FAILURE [None]
  - GASTRIC DISORDER [None]
  - MALAISE [None]
